FAERS Safety Report 9889152 (Version 1)
Quarter: 2014Q1

REPORT INFORMATION
  Report Type: Spontaneous
  Country: US (occurrence: None)
  Receive Date: 20140207
  Receipt Date: 20140207
  Transmission Date: 20141002
  Serious: Yes (Life-Threatening, Other)
  Sender: FDA-Public Use
  Company Number: US-INDICUS PHARMA-000230

PATIENT
  Age: 60 Year
  Sex: Male

DRUGS (3)
  1. METFORMIN HYDROCHLORIDE [Suspect]
     Indication: PRODUCT USED FOR UNKNOWN INDICATION
     Dosage: 1000 MG 2 TIMES PER 1.0/DAYS
  2. SIMVASTATIN(SIMVASTATIN) [Suspect]
     Indication: PRODUCT USED FOR UNKNOWN INDICATION
     Dosage: 20 MG - 1.0 TIMES PER-1.0 DAYS
  3. LISINOPRIL(LISINOPRIL) [Suspect]
     Indication: PRODUCT USED FOR UNKNOWN INDICATION
     Dosage: 10.0 MG-1.0 TIMES / PER 1.0 DAYS

REACTIONS (5)
  - Lactic acidosis [None]
  - Renal failure acute [None]
  - Haemodialysis [None]
  - Toxicity to various agents [None]
  - Hypothermia [None]
